FAERS Safety Report 18840568 (Version 1)
Quarter: 2021Q1

REPORT INFORMATION
  Report Type: Spontaneous
  Country: US (occurrence: US)
  Receive Date: 20210203
  Receipt Date: 20210203
  Transmission Date: 20210419
  Serious: No
  Sender: FDA-Public Use
  Company Number: US-JNJFOC-20210145790

PATIENT
  Age: 77 Year
  Sex: Female
  Weight: 82 kg

DRUGS (1)
  1. DARZALEX FASPRO [Suspect]
     Active Substance: DARATUMUMAB\HYALURONIDASE-FIHJ
     Indication: AMYLOIDOSIS
     Route: 058

REACTIONS (3)
  - Injection site pain [Unknown]
  - Off label use [Unknown]
  - Product use in unapproved indication [Unknown]
